FAERS Safety Report 10186850 (Version 1)
Quarter: 2014Q2

REPORT INFORMATION
  Report Type: Spontaneous
  Country: US (occurrence: US)
  Receive Date: 20140522
  Receipt Date: 20140522
  Transmission Date: 20141212
  Serious: No
  Sender: FDA-Public Use
  Company Number: US-US-EMD SERONO, INC.-7292087

PATIENT
  Sex: Female

DRUGS (1)
  1. REBIF [Suspect]
     Indication: MULTIPLE SCLEROSIS
     Dates: start: 20110501, end: 20140407

REACTIONS (4)
  - Constipation [Recovered/Resolved]
  - Sluggishness [Unknown]
  - Liver function test abnormal [Unknown]
  - Influenza like illness [Unknown]
